FAERS Safety Report 5374408-4 (Version None)
Quarter: 2007Q2

REPORT INFORMATION
  Report Type: 
  Country: None (occurrence: None)
  Receive Date: 20070628
  Receipt Date: 20070628
  Transmission Date: 20071010
  Serious: Yes (Other)
  Sender: FDA-Public Use
  Company Number: None

PATIENT
  Sex: Female
  Weight: 80.9217 kg

DRUGS (1)
  1. AMLODIPINE [Suspect]
     Dosage: 10MG DAILY PO
     Route: 048

REACTIONS (2)
  - NAUSEA [None]
  - VOMITING [None]
